FAERS Safety Report 7997125-0 (Version None)
Quarter: 2011Q4

REPORT INFORMATION
  Report Type: 
  Country: None (occurrence: None)
  Receive Date: 20111221
  Receipt Date: 20111213
  Transmission Date: 20120403
  Serious: Yes (Other)
  Sender: FDA-Public Use
  Company Number: US-ASTELLAS-2011US004860

PATIENT
  Age: 64 Year
  Sex: Female
  Weight: 65 kg

DRUGS (10)
  1. ERLOTINIB HYDROCHLORIDE [Suspect]
     Dosage: UNK MG, UID/QD
     Route: 048
     Dates: start: 20110816
  2. AZD6244 HYDROGEN SULFATE [Suspect]
     Indication: LUNG ADENOCARCINOMA
     Dosage: 150 MG, UID/QD
     Route: 048
     Dates: start: 20110615, end: 20110808
  3. LOPERAMIDE HCL [Concomitant]
     Indication: PRODUCT USED FOR UNKNOWN INDICATION
     Dosage: UNK
     Route: 065
  4. ERLOTINIB HYDROCHLORIDE [Suspect]
     Dosage: 50 MG, UID/QD
     Route: 048
     Dates: start: 20111109, end: 20111205
  5. AZD6244 HYDROGEN SULFATE [Suspect]
     Dosage: UNK MG, UID/QD
     Route: 048
     Dates: start: 20110816
  6. AZD6244 HYDROGEN SULFATE [Suspect]
     Dosage: 75 MG, UID/QD
     Route: 048
     Dates: start: 20111109, end: 20111206
  7. CLINDAMYCIN [Concomitant]
     Indication: PRODUCT USED FOR UNKNOWN INDICATION
     Dosage: UNK
     Route: 061
  8. ERLOTINIB HYDROCHLORIDE [Suspect]
     Indication: LUNG ADENOCARCINOMA
     Dosage: 100 MG, QHS
     Route: 048
     Dates: start: 20110615
  9. ZOFRAN [Concomitant]
     Indication: PRODUCT USED FOR UNKNOWN INDICATION
     Dosage: UNK
     Route: 065
  10. ERLOTINIB HYDROCHLORIDE [Suspect]
     Dosage: 50 MG, UID/QD
     Route: 048
     Dates: start: 20110707, end: 20110808

REACTIONS (5)
  - BLOOD CREATINE PHOSPHOKINASE INCREASED [None]
  - INCORRECT DOSE ADMINISTERED [None]
  - UPPER RESPIRATORY TRACT INFECTION [None]
  - DIARRHOEA [None]
  - URINARY TRACT INFECTION [None]
